FAERS Safety Report 4713355-5 (Version None)
Quarter: 2005Q3

REPORT INFORMATION
  Report Type: 
  Country: None (occurrence: None)
  Receive Date: 20050701
  Receipt Date: 20050120
  Transmission Date: 20060218
  Serious: Yes (Hospitalization)
  Sender: FDA-Public Use
  Company Number: US-2004-035022

PATIENT
  Age: 47 Year
  Sex: Female
  Weight: 83 kg

DRUGS (2)
  1. YASMIN [Suspect]
     Indication: OLIGOMENORRHOEA
     Dosage: 1 TAB(S), 1X/DAY, ORAL
     Route: 048
     Dates: start: 20040601, end: 20041107
  2. TYLENOL [Concomitant]

REACTIONS (4)
  - CORONARY ARTERY DISEASE [None]
  - DEEP VEIN THROMBOSIS [None]
  - PULMONARY EMBOLISM [None]
  - PULMONARY INFARCTION [None]
